FAERS Safety Report 5350826-5 (Version None)
Quarter: 2007Q2

REPORT INFORMATION
  Report Type: 
  Country: None (occurrence: None)
  Receive Date: 20070608
  Receipt Date: 20070529
  Transmission Date: 20071010
  Serious: Yes (Hospitalization, Other)
  Sender: FDA-Public Use
  Company Number: US-AVENTIS-200714050US

PATIENT
  Age: 31 Year
  Sex: Female

DRUGS (5)
  1. LANTUS [Suspect]
     Dosage: DOSE: UNK
     Dates: start: 20030101
  2. LANTUS [Suspect]
  3. EFFEXOR XR [Concomitant]
     Dosage: DOSE: UNK
  4. LOESTRIN [Concomitant]
     Dosage: DOSE: UNK
  5. MULTI-VITAMINS [Concomitant]
     Dosage: DOSE: UNK

REACTIONS (5)
  - BLOOD GLUCOSE INCREASED [None]
  - HAEMATEMESIS [None]
  - HYPOGLYCAEMIC SEIZURE [None]
  - KETOACIDOSIS [None]
  - VOMITING [None]
